FAERS Safety Report 16050254 (Version 1)
Quarter: 2019Q1

REPORT INFORMATION
  Report Type: Spontaneous
  Country: GB (occurrence: GB)
  Receive Date: 20190308
  Receipt Date: 20190308
  Transmission Date: 20190418
  Serious: Yes (Hospitalization)
  Sender: FDA-Public Use
  Company Number: GB-BIOGEN-2019BI00706516

PATIENT
  Age: 40 Year
  Sex: Male

DRUGS (1)
  1. TECFIDERA [Suspect]
     Active Substance: DIMETHYL FUMARATE
     Indication: PRODUCT USED FOR UNKNOWN INDICATION
     Dosage: MAINTENANCE DOSE
     Route: 048

REACTIONS (1)
  - Soft tissue disorder [Unknown]

NARRATIVE: CASE EVENT DATE: 20190228
